FAERS Safety Report 19423366 (Version 1)
Quarter: 2021Q2

REPORT INFORMATION
  Report Type: Spontaneous
  Country: ES (occurrence: ES)
  Receive Date: 20210616
  Receipt Date: 20210616
  Transmission Date: 20210717
  Serious: Yes (Hospitalization)
  Sender: FDA-Public Use
  Company Number: ES-ACCORD-228000

PATIENT
  Age: 68 Year
  Sex: Male

DRUGS (2)
  1. MYCOPHENOLIC ACID. [Suspect]
     Active Substance: MYCOPHENOLIC ACID
     Indication: LIVER TRANSPLANT
     Route: 048
     Dates: start: 20191101, end: 20191205
  2. PREDNISONE. [Interacting]
     Active Substance: PREDNISONE
     Indication: DRESSLER^S SYNDROME
     Route: 048
     Dates: start: 20191108, end: 20191204

REACTIONS (1)
  - Listeria encephalitis [Recovering/Resolving]

NARRATIVE: CASE EVENT DATE: 20191202
